FAERS Safety Report 4889004-2 (Version None)
Quarter: 2005Q4

REPORT INFORMATION
  Report Type: 
  Country: None (occurrence: None)
  Receive Date: 20051215
  Receipt Date: 20050323
  Transmission Date: 20060501
  Serious: Yes (Other)
  Sender: FDA-Public Use
  Company Number: 2005048438

PATIENT
  Sex: Female

DRUGS (1)
  1. BEXTRA [Suspect]
     Indication: BACK PAIN
     Dosage: UNK (10 MG, UNKNOWN), UNKNOWN
     Route: 065
     Dates: start: 20030101

REACTIONS (1)
  - CATARACT OPERATION [None]
